FAERS Safety Report 6580322-9 (Version None)
Quarter: 2010Q1

REPORT INFORMATION
  Report Type: 
  Country: None (occurrence: None)
  Receive Date: 20100212
  Receipt Date: 20091130
  Transmission Date: 20100710
  Serious: No
  Sender: FDA-Public Use
  Company Number: US-ALLERGAN-0916516US

PATIENT
  Sex: Female

DRUGS (4)
  1. COMBIGAN [Suspect]
     Indication: GLAUCOMA
     Dosage: 1 GTT, BID
     Dates: start: 20091113, end: 20091124
  2. AZOPT [Concomitant]
  3. LUMIGAN [Concomitant]
     Indication: GLAUCOMA
  4. FOSAMAX [Concomitant]

REACTIONS (1)
  - VISUAL ACUITY REDUCED [None]
